FAERS Safety Report 9008005 (Version 1)
Quarter: 2013Q1

REPORT INFORMATION
  Report Type: Spontaneous
  Country: US (occurrence: US)
  Receive Date: 20130110
  Receipt Date: 20130110
  Transmission Date: 20140127
  Serious: Yes (Other)
  Sender: FDA-Public Use
  Company Number: US-ABBOTT-13P-163-1032814-00

PATIENT
  Sex: Male

DRUGS (2)
  1. HUMIRA [Suspect]
     Indication: PROCTITIS ULCERATIVE
  2. PREDNISONE [Concomitant]
     Indication: PROCTITIS ULCERATIVE

REACTIONS (3)
  - Colectomy total [Unknown]
  - Drug ineffective [Unknown]
  - Ileostomy [Unknown]
